FAERS Safety Report 25471189 (Version 1)
Quarter: 2025Q2

REPORT INFORMATION
  Report Type: Spontaneous
  Country: US (occurrence: US)
  Receive Date: 20250624
  Receipt Date: 20250624
  Transmission Date: 20250717
  Serious: No
  Sender: AUROBINDO
  Company Number: US-AUROBINDO-AUR-APL-2024-039185

PATIENT
  Age: 59 Year
  Sex: Male
  Weight: 74.842 kg

DRUGS (1)
  1. ZOLPIDEM TARTRATE [Suspect]
     Active Substance: ZOLPIDEM TARTRATE
     Indication: Sleep disorder
     Dosage: 10 MILLIGRAM, ONCE A DAY
     Route: 065
     Dates: end: 20240723

REACTIONS (2)
  - Dizziness [Recovered/Resolved]
  - Feeling abnormal [Recovered/Resolved]
